FAERS Safety Report 6050714-5 (Version None)
Quarter: 2009Q1

REPORT INFORMATION
  Report Type: 
  Country: None (occurrence: None)
  Receive Date: 20090126
  Receipt Date: 20090114
  Transmission Date: 20090719
  Serious: Yes (Hospitalization, Other)
  Sender: FDA-Public Use
  Company Number: JP-PFIZER INC-2008097289

PATIENT

DRUGS (5)
  1. SUNITINIB MALATE [Suspect]
     Indication: GASTROINTESTINAL STROMAL TUMOUR
     Dosage: 50 MG, 1X/DAY
     Route: 048
     Dates: start: 20080826
  2. LASIX [Concomitant]
     Route: 048
  3. CAMOSTAT [Concomitant]
     Route: 048
  4. THYRADIN S [Concomitant]
     Dosage: 25 UG, 1X/DAY
     Route: 048
     Dates: start: 20080819, end: 20081015
  5. MEROPEN [Concomitant]
     Route: 042
     Dates: start: 20081112, end: 20081119

REACTIONS (5)
  - DEHYDRATION [None]
  - HAEMATOCRIT DECREASED [None]
  - HAEMOGLOBIN DECREASED [None]
  - PLATELET COUNT DECREASED [None]
  - RED BLOOD CELL COUNT DECREASED [None]
